FAERS Safety Report 13746263 (Version 2)
Quarter: 2025Q3

REPORT INFORMATION
  Report Type: Spontaneous
  Country: US (occurrence: US)
  Receive Date: 20170712
  Receipt Date: 20250905
  Transmission Date: 20251020
  Serious: Yes (Hospitalization, Other)
  Sender: BRISTOL-MYERS SQUIBB COMPANY
  Company Number: US-BRISTOL-MYERS SQUIBB COMPANY-BMS-2017-061699

PATIENT
  Age: 40 Year
  Sex: Male

DRUGS (7)
  1. ATAZANAVIR SULFATE [Interacting]
     Active Substance: ATAZANAVIR SULFATE
     Indication: HIV infection
     Dosage: 300 MG, QD
     Dates: start: 1993
  2. LAMIVUDINE\ZIDOVUDINE [Interacting]
     Active Substance: LAMIVUDINE\ZIDOVUDINE
     Indication: HIV infection
     Dosage: IN THE MORNING
     Dates: start: 1993
  3. LAMIVUDINE\ZIDOVUDINE [Interacting]
     Active Substance: LAMIVUDINE\ZIDOVUDINE
     Dosage: IN THE EVENING
  4. RITONAVIR [Interacting]
     Active Substance: RITONAVIR
     Indication: HIV infection
     Dosage: 100 MG, QD
     Dates: start: 1993
  5. TACROLIMUS [Interacting]
     Active Substance: TACROLIMUS
     Indication: Renal transplant
     Dosage: 0.2 MG, QWK
  6. MYCOPHENOLATE MOFETIL [Concomitant]
     Active Substance: MYCOPHENOLATE MOFETIL
     Indication: Renal transplant
  7. PREDNISONE [Concomitant]
     Active Substance: PREDNISONE
     Indication: Renal transplant

REACTIONS (3)
  - Acute kidney injury [Recovering/Resolving]
  - Drug level increased [Unknown]
  - Labelled drug-drug interaction medication error [Unknown]
